FAERS Safety Report 6635332 (Version 11)
Quarter: 2013Q3

REPORT INFORMATION
  Report Type: Spontaneous
  Country: US (occurrence: US)
  Receive Date: 20080508
  Receipt Date: 20130808
  Transmission Date: 20140515
  Serious: Yes (Hospitalization, Other)
  Sender: FDA-Public Use
  Company Number: PHEH2008US04164

PATIENT
  Age: 47 Year
  Sex: Male
  Weight: 86.17 kg

DRUGS (64)
  1. AREDIA [Suspect]
     Dosage: 90 MG, QMO
     Route: 042
  2. AREDIA [Suspect]
     Dosage: 30 MG
     Route: 042
  3. ZOMETA [Suspect]
     Dosage: 4 MG
  4. CHEMOTHERAPEUTICS NOS [Concomitant]
  5. CELEXA [Concomitant]
  6. DEXAMETHASONE [Concomitant]
  7. AXID [Concomitant]
  8. NEURONTIN [Concomitant]
  9. FOLIC ACID [Concomitant]
  10. TRIMETHOBENZAMIDE [Concomitant]
  11. CIPROFLOXACIN [Concomitant]
  12. WELLBUTRIN SR [Concomitant]
  13. ZITHROMAX ^HEINRICH MACK^ [Concomitant]
  14. FOSAMAX [Concomitant]
  15. MIACALCIN [Concomitant]
  16. KYTRIL [Concomitant]
  17. TOBRAMYCIN [Concomitant]
  18. TEMAZEPAM [Concomitant]
  19. REMERON [Concomitant]
  20. OXYCODONE/APAP [Concomitant]
  21. PRILOSEC [Concomitant]
  22. LORAZEPAM [Concomitant]
  23. DURAGESIC [Concomitant]
  24. FE-TINIC FORTE [Concomitant]
  25. FUROSEMIDE [Concomitant]
  26. K-DUR [Concomitant]
  27. ALLOPURINOL [Concomitant]
  28. OXYCONTIN [Concomitant]
  29. TOPROL XL [Concomitant]
  30. AMOXICILLIN [Concomitant]
  31. IBUPROFEN [Concomitant]
  32. DIFLUCAN [Concomitant]
  33. FAMVIR                                  /NET/ [Concomitant]
  34. LEVAQUIN [Concomitant]
  35. PROCHLORPERAZINE [Concomitant]
  36. PRINIVIL [Concomitant]
  37. AUGMENTIN                               /SCH/ [Concomitant]
  38. VIAGRA [Concomitant]
  39. LORTAB [Concomitant]
  40. ANDROGEL [Concomitant]
  41. SILVER SULFADIAZINE [Concomitant]
  42. AMBIEN [Concomitant]
  43. METHADONE [Concomitant]
  44. THALIDOMIDE [Concomitant]
  45. MORPHINE [Concomitant]
  46. TORADOL [Concomitant]
  47. VELCADE [Concomitant]
  48. MELPHALAN [Concomitant]
  49. LUNESTA [Concomitant]
  50. BACTRIM DS [Concomitant]
  51. KEFLEX                                  /UNK/ [Concomitant]
  52. AVELOX [Concomitant]
  53. VANCOMYCIN [Concomitant]
  54. ACETAMINOPHEN [Concomitant]
  55. BENADRYL ^ACHE^ [Concomitant]
  56. ACYCLOVIR [Concomitant]
  57. MOXIFLOXACIN [Concomitant]
  58. BACTROBAN                               /NET/ [Concomitant]
  59. FLUCONAZOLE [Concomitant]
  60. K-PHOS [Concomitant]
  61. VORINOSTAT [Concomitant]
  62. NEULASTA [Concomitant]
  63. COMPAZINE [Concomitant]
  64. LYRICA [Concomitant]

REACTIONS (59)
  - Renal failure acute [Unknown]
  - Hyponatraemia [Unknown]
  - Upper respiratory tract infection [Unknown]
  - Sepsis [Unknown]
  - Cellulitis [Unknown]
  - Abscess limb [Unknown]
  - Osteomyelitis chronic [Unknown]
  - Oral candidiasis [Unknown]
  - H1N1 influenza [Unknown]
  - Thrombocytopenia [Unknown]
  - Mononeuritis [Unknown]
  - Hypertension [Unknown]
  - Osteonecrosis of jaw [Unknown]
  - Injury [Unknown]
  - Pain [Unknown]
  - Anxiety [Unknown]
  - Anhedonia [Unknown]
  - Disability [Unknown]
  - Bone disorder [Unknown]
  - Cardiomegaly [Unknown]
  - Interstitial lung disease [Unknown]
  - Compression fracture [Unknown]
  - Spinal osteoarthritis [Unknown]
  - Osteopenia [Unknown]
  - Nephrolithiasis [Unknown]
  - Hepatic steatosis [Unknown]
  - Hepatomegaly [Unknown]
  - Pneumonia [Unknown]
  - Back pain [Unknown]
  - Pain in extremity [Unknown]
  - Lumbar radiculopathy [Unknown]
  - Arthropathy [Unknown]
  - Intervertebral disc protrusion [Unknown]
  - Nerve root injury lumbar [Unknown]
  - Osteoporosis [Unknown]
  - Neutropenia [Unknown]
  - Wound [Unknown]
  - Dental prosthesis user [Unknown]
  - Neuropathy peripheral [Unknown]
  - Anaemia [Unknown]
  - Constipation [Unknown]
  - Hypercalcaemia [Recovered/Resolved]
  - Incontinence [Unknown]
  - Confusional state [Unknown]
  - Decreased appetite [Unknown]
  - Decubitus ulcer [Unknown]
  - Depression [Unknown]
  - Diarrhoea [Unknown]
  - Gait disturbance [Unknown]
  - Asthenia [Unknown]
  - Fatigue [Unknown]
  - Weight decreased [Unknown]
  - Calculus ureteric [Unknown]
  - Abdominal pain [Unknown]
  - Limb deformity [Unknown]
  - Fall [Unknown]
  - Atelectasis [Unknown]
  - Dyspnoea [Unknown]
  - Lower limb fracture [Unknown]
